FAERS Safety Report 6942192-6 (Version None)
Quarter: 2010Q3

REPORT INFORMATION
  Report Type: 
  Country: None (occurrence: None)
  Receive Date: 20100823
  Receipt Date: 20100804
  Transmission Date: 20110219
  Serious: Yes (Other)
  Sender: FDA-Public Use
  Company Number: ACO_00842_2010

PATIENT
  Sex: Female
  Weight: 63.5036 kg

DRUGS (4)
  1. AMPYRA [Suspect]
     Indication: MULTIPLE SCLEROSIS
     Dosage: (10 MG QD ORAL)
     Route: 048
     Dates: start: 20100506, end: 20100507
  2. BACLOFEN [Concomitant]
  3. ADDERALL 10 [Concomitant]
  4. TYSABRI [Concomitant]

REACTIONS (2)
  - CONVULSION [None]
  - INAPPROPRIATE SCHEDULE OF DRUG ADMINISTRATION [None]
